FAERS Safety Report 5833461-1 (Version None)
Quarter: 2008Q3

REPORT INFORMATION
  Report Type: 
  Country: None (occurrence: None)
  Receive Date: 20080804
  Receipt Date: 20080804
  Transmission Date: 20090109
  Serious: Yes (Other)
  Sender: FDA-Public Use
  Company Number: None

PATIENT
  Sex: Female
  Weight: 69.8539 kg

DRUGS (2)
  1. OXYCODONE HCL [Suspect]
     Indication: ARTHRALGIA
     Dosage: IV BID (AT THE TIME)
     Dates: start: 20060401
  2. OXYCODONE HCL [Suspect]
     Indication: BACK PAIN
     Dosage: IV BID (AT THE TIME)
     Dates: start: 20060401

REACTIONS (2)
  - DRUG INEFFECTIVE [None]
  - PHARMACEUTICAL PRODUCT COMPLAINT [None]
